FAERS Safety Report 4996980-6 (Version None)
Quarter: 2006Q2

REPORT INFORMATION
  Report Type: 
  Country: None (occurrence: None)
  Receive Date: 20060509
  Receipt Date: 20060427
  Transmission Date: 20061013
  Serious: Yes (Other)
  Sender: FDA-Public Use
  Company Number: US-BRISTOL-MYERS SQUIBB COMPANY-13361167

PATIENT
  Age: 80 Year
  Sex: Female

DRUGS (1)
  1. KENALOG-40 [Suspect]
     Indication: MACULAR OEDEMA
     Route: 031
     Dates: start: 20060419, end: 20060419

REACTIONS (1)
  - ENDOPHTHALMITIS [None]
